FAERS Safety Report 8205847-1 (Version None)
Quarter: 2012Q1

REPORT INFORMATION
  Report Type: 
  Country: None (occurrence: None)
  Receive Date: 20120313
  Receipt Date: 20120227
  Transmission Date: 20120608
  Serious: Yes (Other)
  Sender: FDA-Public Use
  Company Number: US-ENDO PHARMACEUTICALS INC.-OPER20120226

PATIENT
  Sex: Male
  Weight: 81.72 kg

DRUGS (1)
  1. OPANA ER [Suspect]
     Indication: PAIN
     Route: 048
     Dates: end: 20120226

REACTIONS (3)
  - DRUG ABUSE [None]
  - MIGRAINE [None]
  - DIARRHOEA [None]
